FAERS Safety Report 16535259 (Version 3)
Quarter: 2019Q3

REPORT INFORMATION
  Report Type: Spontaneous
  Country: US (occurrence: US)
  Receive Date: 20190705
  Receipt Date: 20190926
  Transmission Date: 20191004
  Serious: Yes (Hospitalization, Disabling, Other)
  Sender: FDA-Public Use
  Company Number: US-ASTRAZENECA-2019SE94704

PATIENT
  Age: 605 Month
  Sex: Female
  Weight: 117.5 kg

DRUGS (33)
  1. NEXIUM [Suspect]
     Active Substance: ESOMEPRAZOLE MAGNESIUM
     Indication: GASTROOESOPHAGEAL REFLUX DISEASE
     Route: 048
     Dates: start: 2007, end: 2012
  2. SIMVASTATIN. [Concomitant]
     Active Substance: SIMVASTATIN
  3. PEPCID [Concomitant]
     Active Substance: FAMOTIDINE
  4. XANAX [Concomitant]
     Active Substance: ALPRAZOLAM
  5. NOVOLOG [Concomitant]
     Active Substance: INSULIN ASPART
  6. MULTIVITAMIN [Concomitant]
     Active Substance: VITAMINS
  7. NITROSTAT [Concomitant]
     Active Substance: NITROGLYCERIN
  8. IBUPROFEN. [Concomitant]
     Active Substance: IBUPROFEN
  9. NEURONTIN [Concomitant]
     Active Substance: GABAPENTIN
  10. VITAMIN B12 [Concomitant]
     Active Substance: CYANOCOBALAMIN
  11. NIFEDIPINE. [Concomitant]
     Active Substance: NIFEDIPINE
  12. CRESTOR [Concomitant]
     Active Substance: ROSUVASTATIN CALCIUM
  13. LISINOPRIL. [Concomitant]
     Active Substance: LISINOPRIL
  14. MELOXICAM. [Concomitant]
     Active Substance: MELOXICAM
  15. OMEPRAZOLE. [Suspect]
     Active Substance: OMEPRAZOLE
     Indication: GASTROOESOPHAGEAL REFLUX DISEASE
     Dosage: GENERIC
     Route: 065
     Dates: start: 2008, end: 2013
  16. PROTONIX [Suspect]
     Active Substance: PANTOPRAZOLE SODIUM
     Indication: GASTROOESOPHAGEAL REFLUX DISEASE
     Route: 048
     Dates: start: 20150918
  17. METFORMIN [Concomitant]
     Active Substance: METFORMIN HYDROCHLORIDE
  18. POTASSIUM [Concomitant]
     Active Substance: POTASSIUM
  19. WARFARIN [Concomitant]
     Active Substance: WARFARIN
  20. ZOFRAN [Concomitant]
     Active Substance: ONDANSETRON HYDROCHLORIDE
  21. TYLENOL [Concomitant]
     Active Substance: ACETAMINOPHEN
  22. FUROSEMIDE. [Concomitant]
     Active Substance: FUROSEMIDE
  23. DIOVAN [Concomitant]
     Active Substance: VALSARTAN
  24. ASPIRIN. [Concomitant]
     Active Substance: ASPIRIN
  25. AMLODIPINE [Concomitant]
     Active Substance: AMLODIPINE BESYLATE
  26. LOTRISONE [Concomitant]
     Active Substance: BETAMETHASONE DIPROPIONATE\CLOTRIMAZOLE
  27. HYDRALAZINE [Concomitant]
     Active Substance: HYDRALAZINE HYDROCHLORIDE
  28. PROTONIX [Suspect]
     Active Substance: PANTOPRAZOLE SODIUM
     Indication: GASTROOESOPHAGEAL REFLUX DISEASE
     Dosage: GENERIC
     Route: 065
     Dates: start: 2016
  29. COLACE [Concomitant]
     Active Substance: DOCUSATE SODIUM
  30. AMARYL [Concomitant]
     Active Substance: GLIMEPIRIDE
  31. BYSTOLIC [Concomitant]
     Active Substance: NEBIVOLOL HYDROCHLORIDE
  32. NEXIUM [Suspect]
     Active Substance: ESOMEPRAZOLE MAGNESIUM
     Indication: GASTROOESOPHAGEAL REFLUX DISEASE
     Route: 048
     Dates: start: 2007, end: 2016
  33. PROTONIX [Suspect]
     Active Substance: PANTOPRAZOLE SODIUM
     Indication: GASTROOESOPHAGEAL REFLUX DISEASE
     Dosage: GENERIC
     Route: 048
     Dates: start: 20160304

REACTIONS (5)
  - End stage renal disease [Unknown]
  - Acute kidney injury [Recovered/Resolved]
  - Renal failure [Unknown]
  - Chronic kidney disease [Not Recovered/Not Resolved]
  - Renal disorder [Unknown]

NARRATIVE: CASE EVENT DATE: 201509
